FAERS Safety Report 6354368 (Version 5)
Quarter: 2014Q2

REPORT INFORMATION
  Report Type: Spontaneous
  Country: US (occurrence: US)
  Receive Date: 20070703
  Receipt Date: 20140404
  Transmission Date: 20141212
  Serious: Yes (Hospitalization)
  Sender: FDA-Public Use
  Company Number: 2007BI013455

PATIENT
  Age: 60 Year
  Sex: Female

DRUGS (1)
  1. AVONEX [Suspect]
     Indication: MULTIPLE SCLEROSIS
     Route: 030
     Dates: start: 20040423

REACTIONS (7)
  - Knee operation [Unknown]
  - Arthritis [Recovered/Resolved]
  - Multiple sclerosis [Unknown]
  - Gait disturbance [Not Recovered/Not Resolved]
  - Vein disorder [Not Recovered/Not Resolved]
  - Depression [Unknown]
  - Headache [Recovered/Resolved]
